FAERS Safety Report 10797705 (Version 2)
Quarter: 2015Q1

REPORT INFORMATION
  Report Type: Spontaneous
  Country: US (occurrence: US)
  Receive Date: 20150216
  Receipt Date: 20150331
  Transmission Date: 20150721
  Serious: No
  Sender: FDA-Public Use
  Company Number: US-PFIZER INC-2015051580

PATIENT
  Age: 74 Year
  Sex: Female

DRUGS (2)
  1. XALATAN [Suspect]
     Active Substance: LATANOPROST
     Indication: GLAUCOMA
     Dosage: 1 DROP EACH EYE DAY
  2. TIMOLOL [Concomitant]
     Active Substance: TIMOLOL
     Dosage: UNK
     Dates: start: 20140923

REACTIONS (1)
  - Influenza [Unknown]
